FAERS Safety Report 23203463 (Version 1)
Quarter: 2023Q4

REPORT INFORMATION
  Report Type: Spontaneous
  Country: US (occurrence: US)
  Receive Date: 20231120
  Receipt Date: 20231120
  Transmission Date: 20240110
  Serious: No
  Sender: FDA-Public Use
  Company Number: US-drreddys-SPO/USA/23/0180360

PATIENT
  Age: 18 Year
  Sex: Female

DRUGS (1)
  1. ZENATANE [Suspect]
     Active Substance: ISOTRETINOIN
     Indication: Product used for unknown indication
     Dosage: RMA ISSUE DATE: 13 JUNE 2023 02:18:34 PM, 18 JULY 2023 06:19:27 PM, 16 AUGUST 2023 06:21:47 PM, 19 S

REACTIONS (1)
  - Adverse drug reaction [Unknown]
